FAERS Safety Report 10447116 (Version 1)
Quarter: 2014Q3

REPORT INFORMATION
  Report Type: Spontaneous
  Country: JP (occurrence: JP)
  Receive Date: 20140911
  Receipt Date: 20140911
  Transmission Date: 20150326
  Serious: Yes (Other)
  Sender: FDA-Public Use
  Company Number: PHHY2014JP115354

PATIENT
  Age: 35 Year
  Sex: Female

DRUGS (2)
  1. DESFERAL [Suspect]
     Active Substance: DEFEROXAMINE MESYLATE
     Indication: IRON OVERLOAD
     Dosage: 500 MG, DAILY
     Route: 030
     Dates: start: 20140826, end: 20140827
  2. DESFERAL [Suspect]
     Active Substance: DEFEROXAMINE MESYLATE
     Dosage: 500 MG, DAILY
     Route: 030
     Dates: start: 20140828, end: 20140830

REACTIONS (3)
  - Renal impairment [Not Recovered/Not Resolved]
  - Atrial flutter [Not Recovered/Not Resolved]
  - Disease progression [Unknown]

NARRATIVE: CASE EVENT DATE: 20140826
